FAERS Safety Report 23524050 (Version 3)
Quarter: 2024Q2

REPORT INFORMATION
  Report Type: Report from Study
  Country: US (occurrence: US)
  Receive Date: 20240214
  Receipt Date: 20240409
  Transmission Date: 20240716
  Serious: Yes (Death, Other)
  Sender: FDA-Public Use
  Company Number: US-EMERGENT BIOSOLUTIONS,-24000009

PATIENT
  Age: 69 Year
  Sex: Male
  Weight: 63 kg

DRUGS (20)
  1. BRINCIDOFOVIR [Suspect]
     Active Substance: BRINCIDOFOVIR
     Indication: Orthopox virus infection
     Dosage: 2 DOSES
     Route: 048
     Dates: start: 20231214, end: 20231222
  2. CNJ-016 [Suspect]
     Active Substance: HUMAN VACCINIA VIRUS IMMUNE GLOBULIN
     Indication: Orthopox virus infection
     Dosage: 9000 UNITS/KG X 72.2 KG AT 2 ML/MIN
     Route: 042
     Dates: start: 20231212, end: 20231213
  3. TECOVIRIMAT [Suspect]
     Active Substance: TECOVIRIMAT
     Indication: Orthopox virus infection
     Dosage: 200 MILLIGRAM BID, IN SODIUM CHLORIDE 0.9% 60 ML
     Route: 042
     Dates: start: 20231208, end: 20231209
  4. TECOVIRIMAT [Suspect]
     Active Substance: TECOVIRIMAT
     Dosage: 100 MILLIGRAM, BID AT 10ML/HR OVER 3 HOURS
     Route: 042
     Dates: start: 20231210, end: 20231229
  5. OFIRMEV [Concomitant]
     Active Substance: ACETAMINOPHEN
     Indication: Product used for unknown indication
     Dosage: 1000 MILLIGRAM, BID, AT 400 ML/HR OVER 15 MINS
     Route: 042
     Dates: start: 20231209, end: 20231213
  6. ZOVIRAX [Concomitant]
     Active Substance: ACYCLOVIR
     Indication: Product used for unknown indication
     Dosage: 625 MILLIGRAM IN SODIUM CHLORIDE 0.9+ ML IVPB
     Route: 042
     Dates: start: 20231206, end: 20231208
  7. TRANDATE [Concomitant]
     Active Substance: LABETALOL HYDROCHLORIDE
     Indication: Product used for unknown indication
     Dosage: 5 MILLIGRAM PER MILLILITRE 20-40 MG
     Dates: start: 20231207, end: 20231217
  8. MORPHINE [Concomitant]
     Active Substance: MORPHINE
     Indication: Product used for unknown indication
     Dosage: 1-2 MILLIGRAMS
     Dates: start: 20231208, end: 20231221
  9. FENTANYL [Concomitant]
     Active Substance: FENTANYL\FENTANYL CITRATE
     Indication: Product used for unknown indication
     Dosage: UNK
     Dates: start: 20231208, end: 20231208
  10. ROCEPHIN [Concomitant]
     Active Substance: CEFTRIAXONE SODIUM
     Indication: Product used for unknown indication
     Dosage: 2 GRAM IN STERILE WATER 100MG/ML
     Dates: start: 20231208, end: 20231212
  11. BENADRYL [Concomitant]
     Active Substance: DIPHENHYDRAMINE HYDROCHLORIDE
     Indication: Product used for unknown indication
     Dosage: 25 MILLIGRAM
     Dates: start: 20231209, end: 20231212
  12. BENADRYL [Concomitant]
     Active Substance: DIPHENHYDRAMINE HYDROCHLORIDE
     Dosage: 50 MILLIGRAM
     Dates: start: 20231224, end: 20231229
  13. KEFZOL [Concomitant]
     Active Substance: CEFAZOLIN SODIUM
     Indication: Product used for unknown indication
     Dosage: 100 MILLIGRAM PER MILLILITRE
     Route: 042
     Dates: start: 20231214, end: 20231215
  14. LASIX [Concomitant]
     Active Substance: FUROSEMIDE
     Indication: Product used for unknown indication
     Dosage: 20 MILLIGRAM
     Dates: start: 20231220, end: 20231222
  15. LASIX [Concomitant]
     Active Substance: FUROSEMIDE
     Dosage: 40 MILLIGRAM
     Route: 042
     Dates: start: 20231222, end: 20231224
  16. REMDESIVIR [Concomitant]
     Active Substance: REMDESIVIR
     Indication: Product used for unknown indication
     Dosage: 200 MILLIGRAM
     Dates: start: 20231229
  17. GAMMAGARD [Concomitant]
     Active Substance: HUMAN IMMUNOGLOBULIN G
     Indication: Product used for unknown indication
     Dosage: 10 PERCENT INFUSION 30000MG
     Route: 042
     Dates: start: 20231229
  18. LOVENOX [Concomitant]
     Active Substance: ENOXAPARIN SODIUM
     Indication: Product used for unknown indication
     Dosage: 40 MILLIGRAM/0.4 ML
     Route: 030
     Dates: start: 20231203, end: 20231230
  19. VENETOCLAX [Concomitant]
     Active Substance: VENETOCLAX
     Indication: Chronic lymphocytic leukaemia
  20. RITUXAN [Concomitant]
     Active Substance: RITUXIMAB
     Indication: Chronic lymphocytic leukaemia

REACTIONS (5)
  - Acute kidney injury [Unknown]
  - Respiratory failure [Unknown]
  - Disease progression [Fatal]
  - Impaired healing [Unknown]
  - Malnutrition [Unknown]

NARRATIVE: CASE EVENT DATE: 20231203
